FAERS Safety Report 9525003 (Version 1)
Quarter: 2013Q1

REPORT INFORMATION
  Report Type: Spontaneous
  Country: US (occurrence: None)
  Receive Date: 20130314
  Receipt Date: 20130314
  Transmission Date: 20140127
  Serious: No
  Sender: FDA-Public Use
  Company Number: 1301USA002200

PATIENT
  Age: 50 Year
  Sex: Male

DRUGS (6)
  1. VICTRELIS (BOCEPREVIR) CAPSULE [Suspect]
     Dosage: UNK, ORAL
     Route: 048
     Dates: start: 201211, end: 201211
  2. PEGASYS (PEGINTERFERON ALFA-2A) [Suspect]
  3. RIBAVIRIN [Suspect]
     Dosage: ORAL
     Route: 048
  4. LOSARTAN POTASSIUM (LOSARTAN POTASSIUM) [Concomitant]
  5. BUPROPION HYDROCHLORIDE (BUPROPION HYDROCHLORIDE)? [Concomitant]
  6. PRAVASTATIN SODIUM (PRAVASTATIN SODIUM) [Concomitant]

REACTIONS (2)
  - Leukopenia [None]
  - Feeling abnormal [None]
